FAERS Safety Report 6617690-5 (Version None)
Quarter: 2010Q1

REPORT INFORMATION
  Report Type: 
  Country: None (occurrence: None)
  Receive Date: 20100308
  Receipt Date: 20100222
  Transmission Date: 20100710
  Serious: Yes (Death, Hospitalization, Other)
  Sender: FDA-Public Use
  Company Number: PHHY2009NZ48044

PATIENT
  Sex: Male

DRUGS (11)
  1. CLOZARIL [Suspect]
     Indication: SCHIZOAFFECTIVE DISORDER
     Dosage: UNK
     Dates: start: 20090522
  2. AMIODARONE HCL [Concomitant]
  3. PHENOTHIAZINE [Concomitant]
  4. METOPROLOL TARTRATE [Concomitant]
  5. DIAZEPAM [Concomitant]
  6. LACTULOSE [Concomitant]
  7. LAXSOL [Concomitant]
  8. OMEPRAZOLE [Concomitant]
  9. ZOPICLONE [Concomitant]
  10. VALPROATE SODIUM [Concomitant]
  11. COLECALCIFEROL [Concomitant]
     Dosage: UNK

REACTIONS (16)
  - ASPARTATE AMINOTRANSFERASE INCREASED [None]
  - BLOOD CREATININE INCREASED [None]
  - BLOOD POTASSIUM INCREASED [None]
  - BLOOD UREA INCREASED [None]
  - COMA [None]
  - GLOMERULAR FILTRATION RATE DECREASED [None]
  - MALAISE [None]
  - MENTAL IMPAIRMENT [None]
  - NEUTROPHIL COUNT INCREASED [None]
  - PLATELET COUNT DECREASED [None]
  - PNEUMONIA [None]
  - PYREXIA [None]
  - QUALITY OF LIFE DECREASED [None]
  - RENAL FAILURE ACUTE [None]
  - URINARY TRACT INFECTION [None]
  - VENTRICULAR EXTRASYSTOLES [None]
